FAERS Safety Report 5658176-4 (Version None)
Quarter: 2008Q1

REPORT INFORMATION
  Report Type: 
  Country: None (occurrence: None)
  Receive Date: 20080310
  Receipt Date: 20070131
  Transmission Date: 20080703
  Serious: No
  Sender: FDA-Public Use
  Company Number: US-BAYER-200710109BCC

PATIENT
  Age: 45 Year
  Sex: Male
  Weight: 64 kg

DRUGS (3)
  1. ALKA SELTZER PLUS DAY COLD LIQUID GELS [Suspect]
     Indication: NASOPHARYNGITIS
     Route: 048
     Dates: start: 20070109
  2. ALEVE [Suspect]
     Indication: ARTHRITIS
     Dosage: TOTAL DAILY DOSE: 220 MG  UNIT DOSE: 220 MG
     Route: 048
  3. EXCEDRIN [Concomitant]

REACTIONS (4)
  - FLIGHT OF IDEAS [None]
  - INSOMNIA [None]
  - PALPITATIONS [None]
  - SOMNOLENCE [None]
